FAERS Safety Report 17451529 (Version 4)
Quarter: 2020Q4

REPORT INFORMATION
  Report Type: Spontaneous
  Country: US (occurrence: US)
  Receive Date: 20200224
  Receipt Date: 20201020
  Transmission Date: 20210113
  Serious: Yes (Other)
  Sender: FDA-Public Use
  Company Number: US-PFIZER INC-2020080473

PATIENT
  Age: 75 Year
  Sex: Male
  Weight: 73.5 kg

DRUGS (17)
  1. LEVOFLOXACIN. [Concomitant]
     Active Substance: LEVOFLOXACIN
     Indication: CHRONIC OBSTRUCTIVE PULMONARY DISEASE
     Dosage: 500 MG, 1X/DAY
     Route: 048
  2. VITAMIN B12 [Concomitant]
     Active Substance: CYANOCOBALAMIN
     Indication: DYSPNOEA
     Dosage: 100 UG, AS NEEDED (EVERY OTHER DAY AS NEEDED)
     Route: 048
     Dates: start: 20190708
  3. MIRALAX [Concomitant]
     Active Substance: POLYETHYLENE GLYCOL 3350
     Dosage: 17 MG, DAILY (1-4 TIMES DAILY (17 GM, 1 IN 1DAY)  )
  4. VITAMIN D3 [Concomitant]
     Active Substance: CHOLECALCIFEROL
     Dosage: 1000 IU, ALTERNATE DAY (1000 UNITS ORALLY EVERY OTHER DAY)
     Route: 048
     Dates: start: 20190708
  5. PREDNISONE. [Concomitant]
     Active Substance: PREDNISONE
     Indication: CHRONIC OBSTRUCTIVE PULMONARY DISEASE
     Dosage: 40 MG, DAILY
     Route: 048
  6. PREDNISONE. [Concomitant]
     Active Substance: PREDNISONE
     Dosage: 10 MG, DAILY (ONE TABLET DAILY X 3 DAYS FOR 12 DAYS)
     Route: 048
  7. ASPIRIN 81 [Concomitant]
     Active Substance: ASPIRIN
     Dosage: 81 MG, DAILY
     Route: 048
     Dates: start: 20170413
  8. VITAMIN B12 [Concomitant]
     Active Substance: CYANOCOBALAMIN
     Dosage: 100 MG, (100MG, 1 IN 2 WEEK)
     Route: 048
  9. SINGULAIR [Concomitant]
     Active Substance: MONTELUKAST SODIUM
     Dosage: 10 MG, DAILY
     Route: 048
     Dates: start: 20191202
  10. PREDNISONE. [Concomitant]
     Active Substance: PREDNISONE
     Dosage: 30 MG, DAILY (3 TABLETS DAILY X 3 DAYS)
     Route: 048
  11. MIRALAX [Concomitant]
     Active Substance: POLYETHYLENE GLYCOL 3350
     Indication: CONSTIPATION
     Dosage: 17 G, AS NEEDED (DAILY AS NEEDED)
     Route: 048
     Dates: start: 20170515
  12. RED YEAST RICE PLUS [Concomitant]
     Dosage: 1200 MG, DAILY
     Route: 048
     Dates: start: 20190515
  13. ALBUTEROL SULFATE. [Concomitant]
     Active Substance: ALBUTEROL SULFATE
     Indication: WHEEZING
     Dosage: UNK UNK, AS NEEDED (2 PUFFS INHALED EVERY 4 HOURS AS NEEDED)
     Route: 055
     Dates: start: 20190422
  14. XELJANZ XR [Suspect]
     Active Substance: TOFACITINIB CITRATE
     Indication: RHEUMATOID ARTHRITIS
     Dosage: 11 MG, 1X/DAY
     Route: 048
     Dates: start: 20190422
  15. PREDNISONE. [Concomitant]
     Active Substance: PREDNISONE
     Dosage: 20 MG, DAILY (2 TABLETS DAILY X 3 DAYS)
     Route: 048
  16. CALCIUM CARBONATE/VITAMIN D3 [Concomitant]
     Active Substance: CALCIUM CARBONATE\CHOLECALCIFEROL
     Dosage: 600 MG, DAILY
     Route: 048
     Dates: start: 20170413
  17. GUAIFENESIN. [Concomitant]
     Active Substance: GUAIFENESIN
     Indication: CHRONIC OBSTRUCTIVE PULMONARY DISEASE
     Dosage: 400 MG, EVERY 4 HRS
     Route: 048

REACTIONS (5)
  - Drug hypersensitivity [Unknown]
  - Psoriasis [Unknown]
  - Lung neoplasm malignant [Unknown]
  - Pulmonary congestion [Unknown]
  - Pneumonia [Recovered/Resolved]
